FAERS Safety Report 6926095-9 (Version None)
Quarter: 2010Q3

REPORT INFORMATION
  Report Type: 
  Country: None (occurrence: None)
  Receive Date: 20100816
  Receipt Date: 20100805
  Transmission Date: 20110219
  Serious: Yes (Other)
  Sender: FDA-Public Use
  Company Number: US-PFIZER INC-2010089347

PATIENT
  Sex: Male
  Weight: 77.1 kg

DRUGS (4)
  1. CHANTIX [Suspect]
     Indication: SMOKING CESSATION THERAPY
     Dosage: 0.5 MG, 1X/DAY
     Route: 048
     Dates: start: 20100701
  2. CHANTIX [Suspect]
     Dosage: 1 MG, 2X/DAY
     Dates: start: 20100701
  3. EQUATE SLEEP AID TABLET [Concomitant]
     Indication: SLEEP DISORDER
     Dosage: UNK, DAILY
  4. DOXAZOSIN [Concomitant]
     Indication: BLADDER DISORDER
     Dosage: 2 MG, UNK

REACTIONS (3)
  - ANGER [None]
  - IRRITABILITY [None]
  - NERVOUSNESS [None]
